FAERS Safety Report 18206009 (Version 2)
Quarter: 2020Q3

REPORT INFORMATION
  Report Type: Spontaneous
  Country: US (occurrence: US)
  Receive Date: 20200827
  Receipt Date: 20200910
  Transmission Date: 20201103
  Serious: No
  Sender: FDA-Public Use
  Company Number: US-TEVA-2020-US-1815908

PATIENT
  Age: 55 Year
  Sex: Male

DRUGS (1)
  1. SILDENAFIL TEVA [Suspect]
     Active Substance: SILDENAFIL
     Route: 065

REACTIONS (2)
  - Drug ineffective [Unknown]
  - Personal relationship issue [Unknown]
